FAERS Safety Report 18298614 (Version 1)
Quarter: 2020Q3

REPORT INFORMATION
  Report Type: Spontaneous
  Country: IT (occurrence: IT)
  Receive Date: 20200922
  Receipt Date: 20200922
  Transmission Date: 20201103
  Serious: Yes (Hospitalization, Other)
  Sender: FDA-Public Use
  Company Number: IT-BRISTOL-MYERS SQUIBB COMPANY-BMS-2020-074761

PATIENT
  Age: 60 Year
  Sex: Female

DRUGS (1)
  1. NIVOLUMAB [Suspect]
     Active Substance: NIVOLUMAB
     Indication: TONSIL CANCER
     Dosage: 240 MILLIGRAM, Q2WK
     Route: 065

REACTIONS (3)
  - Immune-mediated encephalitis [Recovered/Resolved]
  - Diarrhoea [Recovered/Resolved]
  - Immune-mediated hypothyroidism [Recovered/Resolved]
